FAERS Safety Report 6286024-0 (Version None)
Quarter: 2009Q3

REPORT INFORMATION
  Report Type: 
  Country: None (occurrence: None)
  Receive Date: 20090728
  Receipt Date: 20090720
  Transmission Date: 20100115
  Serious: Yes (Hospitalization)
  Sender: FDA-Public Use
  Company Number: US-AMGEN-QUU349061

PATIENT
  Sex: Female

DRUGS (1)
  1. ENBREL [Suspect]
     Indication: ANKYLOSING SPONDYLITIS
     Route: 058
     Dates: start: 20050101

REACTIONS (4)
  - ARTHRALGIA [None]
  - DRUG EXPOSURE DURING PREGNANCY [None]
  - PREGNANCY INDUCED HYPERTENSION [None]
  - PREMATURE LABOUR [None]
